FAERS Safety Report 26105871 (Version 2)
Quarter: 2025Q4

REPORT INFORMATION
  Report Type: Report from Study
  Country: EU (occurrence: EU)
  Receive Date: 20251201
  Receipt Date: 20251204
  Transmission Date: 20260118
  Serious: Yes (Hospitalization, Other)
  Sender: ABBVIE
  Company Number: EU-ABBVIE-6569044

PATIENT
  Age: 76 Year
  Sex: Male

DRUGS (2)
  1. FOSCARBIDOPA\FOSLEVODOPA [Suspect]
     Active Substance: FOSCARBIDOPA\FOSLEVODOPA
     Indication: Product used for unknown indication
     Dosage: FLOW RATE 1: 0.36 ML/H, DURATION (H): DAYTIME FLOW RATE.?FLOW RATE 2: 0.15 ML/H, DURATION (H): NI...
     Route: 058
     Dates: start: 20251031, end: 20251201
  2. BENSERAZIDE HYDROCHLORIDE\LEVODOPA [Concomitant]
     Active Substance: BENSERAZIDE HYDROCHLORIDE\LEVODOPA
     Indication: Product used for unknown indication
     Dosage: TIME INTERVAL: 0.33333333 DAYS: MODOPAR DISPERSIBLE?HALF TABLET,
     Route: 048

REACTIONS (5)
  - Condition aggravated [Not Recovered/Not Resolved]
  - Camptocormia [Not Recovered/Not Resolved]
  - Posture abnormal [Unknown]
  - Depressed level of consciousness [Not Recovered/Not Resolved]
  - Myoclonus [Not Recovered/Not Resolved]

NARRATIVE: CASE EVENT DATE: 20250101
